FAERS Safety Report 7027246-0 (Version None)
Quarter: 2010Q4

REPORT INFORMATION
  Report Type: 
  Country: None (occurrence: None)
  Receive Date: 20101004
  Receipt Date: 20100920
  Transmission Date: 20110411
  Serious: Yes (Other)
  Sender: FDA-Public Use
  Company Number: US-MYLANLABS-2010S1017203

PATIENT
  Age: 49 Year
  Sex: Female

DRUGS (6)
  1. TOPIRAMATE [Suspect]
     Indication: NEUROPATHY PERIPHERAL
     Dosage: DOSE DECREASED TO 50MG TWICE DAILY 3 DAYS PRIOR TO PRESENTATION
     Route: 065
  2. TOPIRAMATE [Suspect]
     Dosage: DOSE DECREASED FROM 150MG TWICE DAILY
     Route: 065
  3. OLANZAPINE [Concomitant]
     Route: 065
  4. ATORVASTATIN [Concomitant]
     Route: 065
  5. ASPIRIN [Concomitant]
     Route: 065
  6. ESOMEPRAZOLE [Concomitant]
     Route: 065

REACTIONS (3)
  - CALCULUS URETERIC [None]
  - METABOLIC ACIDOSIS [None]
  - RENAL IMPAIRMENT [None]
